FAERS Safety Report 4586359-3 (Version None)
Quarter: 2005Q1

REPORT INFORMATION
  Report Type: 
  Country: None (occurrence: None)
  Receive Date: 20050125
  Receipt Date: 20040903
  Transmission Date: 20050727
  Serious: No
  Sender: FDA-Public Use
  Company Number: USA040977434

PATIENT
  Age: 66 Year
  Sex: Female

DRUGS (11)
  1. FORTEO [Suspect]
     Indication: OSTEOPOROSIS
     Dates: start: 20040827
  2. TENORMIN (ATENOLOL EG) [Concomitant]
  3. ESTRACE [Concomitant]
  4. MIACALCIN [Concomitant]
  5. FOSAMAX [Concomitant]
  6. CALCIUM WITH VITAMIN D [Concomitant]
  7. IRON [Concomitant]
  8. AMBIEN [Concomitant]
  9. ZYRTEC [Concomitant]
  10. PAXIL [Concomitant]
  11. XANAX (ALPRAZOLAM DUM) [Concomitant]

REACTIONS (4)
  - HEADACHE [None]
  - INFLUENZA LIKE ILLNESS [None]
  - MYALGIA [None]
  - PAIN IN EXTREMITY [None]
